FAERS Safety Report 16035163 (Version 1)
Quarter: 2019Q1

REPORT INFORMATION
  Report Type: Report from Study
  Country: JP (occurrence: JP)
  Receive Date: 20190305
  Receipt Date: 20190305
  Transmission Date: 20190418
  Serious: Yes (Death, Hospitalization, Other)
  Sender: FDA-Public Use
  Company Number: JP-MYLANLABS-2019M1018119

PATIENT
  Age: 44 Year
  Sex: Male

DRUGS (3)
  1. CYCLOPHOSPHAMIDE. [Suspect]
     Active Substance: CYCLOPHOSPHAMIDE
     Indication: BONE MARROW CONDITIONING REGIMEN
     Route: 065
  2. TACROLIMUS. [Suspect]
     Active Substance: TACROLIMUS
     Indication: PROPHYLAXIS AGAINST GRAFT VERSUS HOST DISEASE
     Dosage: INITIATED ON DAY OF TRANSPLANTATION
     Route: 065
  3. MYCOPHENOLATE MOFETIL. [Suspect]
     Active Substance: MYCOPHENOLATE MOFETIL
     Indication: PROPHYLAXIS AGAINST GRAFT VERSUS HOST DISEASE
     Dosage: INITIATED ON DAY OF TRANSPLANTATION AND SCHEDULED FOR 30 DAYS; AFTER 30 DAYS, SCHEDULED TO BE TAP...
     Route: 065

REACTIONS (5)
  - Pneumonia [Fatal]
  - Diarrhoea [Recovered/Resolved]
  - Autonomic nervous system imbalance [Recovered/Resolved]
  - Meningoencephalitis herpetic [Recovered/Resolved]
  - Human herpesvirus 6 infection [Fatal]
